FAERS Safety Report 20670919 (Version 1)
Quarter: 2022Q2

REPORT INFORMATION
  Report Type: Spontaneous
  Country: US (occurrence: US)
  Receive Date: 20220404
  Receipt Date: 20220404
  Transmission Date: 20220720
  Serious: No
  Sender: FDA-Public Use
  Company Number: US-PFIZER INC-202101068995

PATIENT
  Age: 79 Year
  Sex: Female

DRUGS (1)
  1. IBRANCE [Suspect]
     Active Substance: PALBOCICLIB
     Dosage: 125 MG, CYCLIC (3 DAYS OFF IBRANCE (AFTER 7 DAYS OFF (TOTAL OF 10 DAYS))
     Dates: start: 20210226

REACTIONS (2)
  - Off label use [Unknown]
  - Skin reaction [Unknown]

NARRATIVE: CASE EVENT DATE: 20210101
